FAERS Safety Report 8697719 (Version 3)
Quarter: 2013Q1

REPORT INFORMATION
  Report Type: Report from Study
  Country: JP (occurrence: JP)
  Receive Date: 20120801
  Receipt Date: 20130214
  Transmission Date: 20140127
  Serious: Yes (Other)
  Sender: FDA-Public Use
  Company Number: JP-009507513-1207JPN011106

PATIENT
  Age: 64 Year
  Sex: Male
  Weight: 92 kg

DRUGS (6)
  1. PEGINTRON [Suspect]
     Indication: CHRONIC HEPATITIS C
     Dosage: 1.5 MICROGRAM PER KILOGRAM, QW
     Route: 058
     Dates: start: 20120403, end: 20120605
  2. REBETOL [Suspect]
     Indication: CHRONIC HEPATITIS C
     Dosage: 800 MG, QD
     Route: 048
     Dates: start: 20120403, end: 20120605
  3. TELAVIC [Suspect]
     Indication: CHRONIC HEPATITIS C
     Dosage: 2250 MG, QD
     Route: 048
     Dates: start: 20120403, end: 20120605
  4. ANTEBATE [Concomitant]
     Indication: RASH
     Dosage: UNK, PRN
     Route: 061
     Dates: start: 20120409, end: 20120502
  5. [THERAPY UNSPECIFIED] [Concomitant]
     Indication: RASH
     Dosage: UNK, PRN
     Route: 061
     Dates: start: 20120409, end: 20120502
  6. PREDONINE [Concomitant]
     Indication: RASH
     Dosage: 30 MG, QD
     Route: 048
     Dates: start: 20120409, end: 20120502

REACTIONS (3)
  - Platelet count decreased [Recovered/Resolved]
  - Malaise [Recovered/Resolved]
  - Haemoglobin decreased [Recovered/Resolved]
